FAERS Safety Report 9399329 (Version 1)
Quarter: 2013Q3

REPORT INFORMATION
  Report Type: Spontaneous
  Country: KR (occurrence: KR)
  Receive Date: 20130715
  Receipt Date: 20130715
  Transmission Date: 20140515
  Serious: Yes (Other)
  Sender: FDA-Public Use
  Company Number: KR-BAYER-2013-081679

PATIENT
  Age: 45 Year
  Sex: Female

DRUGS (1)
  1. INTERFERON BETA - 1B [Suspect]
     Indication: MULTIPLE SCLEROSIS RELAPSE PROPHYLAXIS
     Dosage: 0.3 MG, UNK
     Route: 058

REACTIONS (1)
  - Acute febrile neutrophilic dermatosis [Recovered/Resolved]
